FAERS Safety Report 5586453-4 (Version None)
Quarter: 2008Q1

REPORT INFORMATION
  Report Type: 
  Country: None (occurrence: None)
  Receive Date: 20080110
  Receipt Date: 20080108
  Transmission Date: 20080703
  Serious: Yes (Other)
  Sender: FDA-Public Use
  Company Number: FR-BRISTOL-MYERS SQUIBB COMPANY-14034615

PATIENT
  Age: 58 Year
  Sex: Female

DRUGS (2)
  1. HYDREA [Suspect]
     Indication: CHRONIC MYELOID LEUKAEMIA
     Dates: end: 20060901
  2. CORTICOSTEROID [Concomitant]

REACTIONS (3)
  - ANAEMIA [None]
  - MUCOSAL PIGMENTATION [None]
  - VASCULITIS [None]
